FAERS Safety Report 19009025 (Version 1)
Quarter: 2021Q1

REPORT INFORMATION
  Report Type: Spontaneous
  Country: DE (occurrence: DE)
  Receive Date: 20210315
  Receipt Date: 20210315
  Transmission Date: 20210420
  Serious: No
  Sender: FDA-Public Use
  Company Number: DE-MYLANLABS-2021M1014158

PATIENT
  Sex: Female

DRUGS (1)
  1. FASTJEKT [Suspect]
     Active Substance: EPINEPHRINE
     Indication: PRODUCT USED FOR UNKNOWN INDICATION
     Dosage: UNK

REACTIONS (3)
  - Cyanosis [Unknown]
  - Injury associated with device [Unknown]
  - Product quality issue [Unknown]
